FAERS Safety Report 6406764-X (Version None)
Quarter: 2009Q4

REPORT INFORMATION
  Report Type: 
  Country: None (occurrence: None)
  Receive Date: 20091020
  Receipt Date: 20091012
  Transmission Date: 20100525
  Serious: Yes (Other)
  Sender: FDA-Public Use
  Company Number: EC-JNJFOC-20091004610

PATIENT
  Age: 74 Year
  Sex: Female

DRUGS (2)
  1. REMINYL ER [Suspect]
     Indication: DRUG USE FOR UNKNOWN INDICATION
     Route: 065
  2. CLONAZEPAM [Concomitant]
     Dosage: IN THE EVENING
     Route: 065

REACTIONS (4)
  - COGNITIVE DISORDER [None]
  - MOTOR DYSFUNCTION [None]
  - RENAL IMPAIRMENT [None]
  - SOMNOLENCE [None]
